FAERS Safety Report 11962185 (Version 3)
Quarter: 2016Q1

REPORT INFORMATION
  Report Type: Spontaneous
  Country: CA (occurrence: CA)
  Receive Date: 20160126
  Receipt Date: 20160224
  Transmission Date: 20160526
  Serious: Yes (Other)
  Sender: FDA-Public Use
  Company Number: CA-ACTAVIS-2016-01513

PATIENT
  Age: 15 Year
  Sex: Male

DRUGS (6)
  1. RISPERIDONE (UNKNOWN) [Suspect]
     Active Substance: RISPERIDONE
     Indication: SCHIZOPHRENIA
     Dosage: 3 MG, DAILY
     Route: 065
  2. RISPERIDONE (UNKNOWN) [Suspect]
     Active Substance: RISPERIDONE
     Indication: MENTAL DISABILITY
  3. ZIPRASIDONE (UNKNOWN) [Suspect]
     Active Substance: ZIPRASIDONE
     Indication: SCHIZOPHRENIA
  4. OLANZAPINE (UNKNOWN) [Suspect]
     Active Substance: OLANZAPINE
     Indication: MENTAL DISABILITY
  5. OLANZAPINE (UNKNOWN) [Suspect]
     Active Substance: OLANZAPINE
     Indication: SCHIZOPHRENIA
     Dosage: 10 MG, DAILY
     Route: 065
  6. ZIPRASIDONE (UNKNOWN) [Suspect]
     Active Substance: ZIPRASIDONE
     Indication: MENTAL DISABILITY
     Dosage: 40 MG, DAILY
     Route: 065

REACTIONS (3)
  - Gynaecomastia [Unknown]
  - Weight increased [Unknown]
  - Oculogyric crisis [Recovered/Resolved]
